FAERS Safety Report 19021274 (Version 1)
Quarter: 2021Q1

REPORT INFORMATION
  Report Type: Report from Study
  Country: IN (occurrence: IN)
  Receive Date: 20210317
  Receipt Date: 20210317
  Transmission Date: 20210420
  Serious: Yes (Other)
  Sender: FDA-Public Use
  Company Number: IN-PURDUE-USA-2021-0234109

PATIENT

DRUGS (15)
  1. EPINEPHRINE. [Suspect]
     Active Substance: EPINEPHRINE
     Indication: LEFT VENTRICULAR DILATATION
     Dosage: UNK
     Route: 065
  2. EPINEPHRINE. [Suspect]
     Active Substance: EPINEPHRINE
     Indication: LEFT VENTRICULAR DYSFUNCTION
  3. VECURONIUM BROMIDE. [Suspect]
     Active Substance: VECURONIUM BROMIDE
     Indication: MUSCLE RELAXANT THERAPY
     Dosage: UNK (10 MG.KG^?1)
     Route: 065
  4. PARACETAMOL [Suspect]
     Active Substance: ACETAMINOPHEN
     Indication: POSTOPERATIVE ANALGESIA
     Dosage: 1 G, Q6H
     Route: 042
  5. NOREPINEPHRINE. [Suspect]
     Active Substance: NOREPINEPHRINE
     Indication: CORONARY ARTERY DISEASE
     Dosage: UNK
     Route: 065
  6. BUPIVACAINE. [Suspect]
     Active Substance: BUPIVACAINE
     Indication: SPINAL ANAESTHESIA
     Dosage: 40 MG, SINGLE
     Route: 037
  7. FENTANYL. [Suspect]
     Active Substance: FENTANYL
     Indication: ANALGESIC THERAPY
     Dosage: UNK, PRN (10?20 MCG)
     Route: 042
  8. NON?PMN MORPHINE SULFATE [Suspect]
     Active Substance: MORPHINE SULFATE
     Indication: SPINAL ANAESTHESIA
     Dosage: 250 MCG, SINGLE
     Route: 037
  9. MILRINONE [Suspect]
     Active Substance: MILRINONE
     Indication: LEFT VENTRICULAR DYSFUNCTION
     Dosage: UNK (0.2?0.25 MCG.KG^?1.MIN^?1)
     Route: 065
  10. KETAMINE [Suspect]
     Active Substance: KETAMINE
     Indication: GENERAL ANAESTHESIA
     Dosage: UNK (20?30 MG)
     Route: 065
  11. PROPOFOL. [Suspect]
     Active Substance: PROPOFOL
     Indication: GENERAL ANAESTHESIA
     Dosage: UNK
     Route: 065
  12. ISOFLURANE. [Suspect]
     Active Substance: ISOFLURANE
     Indication: ANAESTHESIA
     Dosage: UNK
     Route: 065
  13. NON?PMN MORPHINE SULFATE [Suspect]
     Active Substance: MORPHINE SULFATE
     Indication: ANALGESIC THERAPY
     Dosage: UNK, PRN (2?3 MG)
     Route: 042
  14. PHENYLEPHRINE [Suspect]
     Active Substance: PHENYLEPHRINE HYDROCHLORIDE
     Indication: CORONARY ARTERY DISEASE
     Dosage: UNK
     Route: 065
  15. LIDOCAINE. [Suspect]
     Active Substance: LIDOCAINE
     Indication: GENERAL ANAESTHESIA
     Dosage: UNK (2.MG.KG^?1)
     Route: 065

REACTIONS (1)
  - Vasoplegia syndrome [Recovered/Resolved]
